FAERS Safety Report 9303888 (Version 2)
Quarter: 2013Q3

REPORT INFORMATION
  Report Type: Spontaneous
  Country: IT (occurrence: IT)
  Receive Date: 20130522
  Receipt Date: 20130730
  Transmission Date: 20140515
  Serious: Yes (Other)
  Sender: FDA-Public Use
  Company Number: IT-TEVA-406057ISR

PATIENT
  Age: 66 Year
  Sex: Female
  Weight: 45 kg

DRUGS (9)
  1. FLUOROURACIL [Suspect]
     Indication: INVASIVE DUCTAL BREAST CARCINOMA
     Dosage: 700 MG CYCLICAL
     Route: 042
     Dates: start: 20130121
  2. FLUOROURACIL [Suspect]
     Dosage: DUE TO AES, DOSAGE WERE REDUCED TO 80% (560 MG CYCLICAL)
     Route: 042
  3. EPIRUBICIN [Suspect]
     Indication: INVASIVE DUCTAL BREAST CARCINOMA
     Dosage: 105 MG CYCLICAL
     Route: 042
     Dates: start: 20130121
  4. EPIRUBICIN [Suspect]
     Dosage: DUE TO AES, DOSAGE WERE REDUCED TO 80% (84 MG CYCLICAL)
     Route: 042
  5. ENDOXAN BAXTER [Suspect]
     Indication: INVASIVE DUCTAL BREAST CARCINOMA
     Dosage: 700 MG CYCLICAL
     Route: 042
     Dates: start: 20130121
  6. ENDOXAN BAXTER [Suspect]
     Dosage: DUE TO AES, DOSAGE WERE REDUCED TO 80% (560 MG CYCLICAL)
     Route: 042
  7. EUTIROX [Concomitant]
     Indication: HYPOTHYROIDISM
  8. ALIFLUS [Concomitant]
     Indication: ASTHMA
  9. SIVASTIN [Concomitant]
     Indication: HYPERCHOLESTEROLAEMIA

REACTIONS (3)
  - Neutropenia [Recovered/Resolved]
  - Asthenia [Recovered/Resolved]
  - Constipation [Recovered/Resolved]
